FAERS Safety Report 23382466 (Version 1)
Quarter: 2024Q1

REPORT INFORMATION
  Report Type: Spontaneous
  Country: AU (occurrence: AU)
  Receive Date: 20240109
  Receipt Date: 20240109
  Transmission Date: 20240410
  Serious: Yes (Hospitalization)
  Sender: FDA-Public Use
  Company Number: AU-EPICPHARMA-AU-2024EPCLIT00008

PATIENT
  Age: 34 Year
  Sex: Male

DRUGS (6)
  1. VORICONAZOLE [Suspect]
     Active Substance: VORICONAZOLE
     Indication: Febrile neutropenia
     Route: 048
  2. VORICONAZOLE [Suspect]
     Active Substance: VORICONAZOLE
     Route: 048
  3. PALIPERIDONE [Suspect]
     Active Substance: PALIPERIDONE
     Indication: Schizophrenia
     Dosage: EXTENDED RELEASE 3 MG DAILY WAS STARTED AND UP-TITRATED TO 9 MG OVER 10 DAYS
     Route: 065
  4. PALIPERIDONE [Suspect]
     Active Substance: PALIPERIDONE
     Dosage: 3 MG DAILY AND UP-TITRATED TO 9 MG
     Route: 065
  5. PALIPERIDONE [Suspect]
     Active Substance: PALIPERIDONE
     Route: 065
  6. PIPERACILLIN SODIUM\TAZOBACTAM SODIUM [Concomitant]
     Active Substance: PIPERACILLIN SODIUM\TAZOBACTAM SODIUM
     Indication: Febrile neutropenia
     Route: 065

REACTIONS (5)
  - Extrapyramidal disorder [Recovered/Resolved]
  - Hypertonia [Recovered/Resolved]
  - Hyperreflexia [Recovered/Resolved]
  - Drug interaction [Unknown]
  - Product use in unapproved indication [Unknown]
